FAERS Safety Report 25519324 (Version 1)
Quarter: 2025Q3

REPORT INFORMATION
  Report Type: Spontaneous
  Country: EU (occurrence: EU)
  Receive Date: 20250704
  Receipt Date: 20250704
  Transmission Date: 20251020
  Serious: Yes (Hospitalization, Other)
  Sender: AMGEN
  Company Number: EU-AMGEN-PRTSP2025129548

PATIENT
  Age: 47 Year
  Sex: Female

DRUGS (2)
  1. ETANERCEPT [Suspect]
     Active Substance: ETANERCEPT
     Indication: Spondyloarthropathy
     Route: 065
  2. ADALIMUMAB [Suspect]
     Active Substance: ADALIMUMAB
     Indication: Spondyloarthropathy
     Route: 065

REACTIONS (5)
  - Rhabdomyolysis [Unknown]
  - Cutaneous T-cell lymphoma [Unknown]
  - Myopathy [Unknown]
  - Drug tolerance decreased [Unknown]
  - Anaemia [Unknown]
